FAERS Safety Report 9648773 (Version 12)
Quarter: 2014Q1

REPORT INFORMATION
  Report Type: Spontaneous
  Country: US (occurrence: US)
  Receive Date: 20131028
  Receipt Date: 20140304
  Transmission Date: 20141002
  Serious: Yes (Other)
  Sender: FDA-Public Use
  Company Number: PHEH2013US022447

PATIENT
  Sex: Female
  Weight: 69.84 kg

DRUGS (5)
  1. AREDIA [Suspect]
     Route: 042
  2. ZOMETA [Suspect]
     Indication: PLASMA CELL MYELOMA
     Dosage: 4 MG,
     Route: 042
  3. REVLIMID [Concomitant]
  4. MELPHALAN [Concomitant]
  5. VELCADE [Concomitant]

REACTIONS (193)
  - Osteonecrosis of jaw [Unknown]
  - Injury [Unknown]
  - Ovarian cyst [Unknown]
  - Monoclonal gammopathy [Unknown]
  - Renal failure chronic [Unknown]
  - Hypertension [Unknown]
  - Osteoarthritis [Unknown]
  - Hyperlipidaemia [Unknown]
  - Intervertebral disc space narrowing [Unknown]
  - Intervertebral disc degeneration [Unknown]
  - Scoliosis [Unknown]
  - Intervertebral disc disorder [Unknown]
  - Arthropathy [Unknown]
  - Lumbar spinal stenosis [Unknown]
  - Atelectasis [Unknown]
  - Dyspnoea [Unknown]
  - Cholecystitis acute [Unknown]
  - Hepatic cyst [Unknown]
  - Renal cyst [Unknown]
  - Depression [Unknown]
  - Cervical radiculopathy [Unknown]
  - Spinal osteoarthritis [Unknown]
  - Gallbladder disorder [Unknown]
  - Bone cancer [Unknown]
  - Neoplasm malignant [Unknown]
  - Rib fracture [Unknown]
  - Compression fracture [Unknown]
  - Muscle spasms [Unknown]
  - Pulmonary embolism [Unknown]
  - Odynophagia [Unknown]
  - Vertebral foraminal stenosis [Unknown]
  - Muscle strain [Unknown]
  - Deep vein thrombosis [Unknown]
  - Bone disorder [Unknown]
  - Exposed bone in jaw [Unknown]
  - Cerebral cyst [Unknown]
  - Spondylolisthesis [Unknown]
  - Bone pain [Unknown]
  - Mucosal inflammation [Unknown]
  - Gastrointestinal toxicity [Unknown]
  - Clostridium difficile infection [Unknown]
  - Enteritis [Unknown]
  - Magnesium deficiency [Unknown]
  - Syncope [Unknown]
  - Neuropathy peripheral [Unknown]
  - Coronary artery disease [Unknown]
  - Encephalopathy [Unknown]
  - Cerebrovascular accident [Unknown]
  - Embolism [Unknown]
  - Gastrooesophageal reflux disease [Unknown]
  - Amnesia [Unknown]
  - Plasma cell myeloma [Unknown]
  - Malignant neoplasm progression [Unknown]
  - Pleural effusion [Unknown]
  - Hypoxia [Unknown]
  - Cardiac failure congestive [Unknown]
  - Pneumonia klebsiella [Unknown]
  - Stomatitis [Unknown]
  - Atrophic vulvovaginitis [Unknown]
  - Breast mass [Unknown]
  - Varicose vein [Unknown]
  - Colitis [Unknown]
  - Haemorrhoids [Unknown]
  - Abdominal adhesions [Unknown]
  - Pelvic adhesions [Unknown]
  - Fallopian tube cyst [Unknown]
  - Aortic disorder [Unknown]
  - Joint swelling [Unknown]
  - Haemorrhage [Unknown]
  - Oropharyngeal pain [Unknown]
  - Vertigo [Unknown]
  - Cerebellar haemorrhage [Unknown]
  - Urinary tract infection [Unknown]
  - Fall [Unknown]
  - Diarrhoea [Recovering/Resolving]
  - Cellulitis [Recovering/Resolving]
  - Skin ulcer [Unknown]
  - Hypothyroidism [Recovering/Resolving]
  - Osteopenia [Unknown]
  - Osteoporosis [Unknown]
  - Retinal detachment [Unknown]
  - Joint effusion [Unknown]
  - Hypogammaglobulinaemia [Unknown]
  - Ventricular hypertrophy [Unknown]
  - Mitral valve incompetence [Unknown]
  - Tricuspid valve incompetence [Unknown]
  - Radicular cyst [Unknown]
  - Tooth abscess [Unknown]
  - Toothache [Unknown]
  - Bronchitis [Unknown]
  - Oedema peripheral [Unknown]
  - Asthma [Unknown]
  - Hypersomnia [Unknown]
  - Pulmonary mass [Unknown]
  - Tongue ulceration [Unknown]
  - Swelling face [Unknown]
  - Dizziness [Unknown]
  - Balance disorder [Unknown]
  - Ecchymosis [Unknown]
  - Hypoaesthesia [Unknown]
  - Joint range of motion decreased [Unknown]
  - Anaemia [Unknown]
  - Mitral valve calcification [Unknown]
  - Aortic valve calcification [Unknown]
  - Pulmonary valve incompetence [Unknown]
  - Osteosclerosis [Unknown]
  - Exostosis [Unknown]
  - Myocardial infarction [Unknown]
  - Arthritis [Unknown]
  - Skin lesion [Unknown]
  - Mass [Unknown]
  - Tremor [Unknown]
  - Second primary malignancy [Unknown]
  - Malignant melanoma [Unknown]
  - Myositis [Unknown]
  - Left ventricular dysfunction [Unknown]
  - Pulmonary hypertension [Unknown]
  - Hypotension [Unknown]
  - Hiatus hernia [Unknown]
  - Cholelithiasis [Unknown]
  - Bronchiectasis [Unknown]
  - Pulmonary fibrosis [Unknown]
  - Vascular calcification [Unknown]
  - Arteriosclerosis [Unknown]
  - Aortic calcification [Unknown]
  - Aortic arteriosclerosis [Unknown]
  - Psoriasis [Unknown]
  - Rib deformity [Unknown]
  - Hepatic lesion [Unknown]
  - Arthralgia [Unknown]
  - Encephalomalacia [Unknown]
  - Breast calcifications [Unknown]
  - Spinal compression fracture [Unknown]
  - Radiculopathy [Unknown]
  - Intervertebral disc protrusion [Unknown]
  - Osteolysis [Unknown]
  - Soft tissue mass [Unknown]
  - Bone lesion [Unknown]
  - Metastases to spine [Unknown]
  - Leukopenia [Unknown]
  - Bone swelling [Unknown]
  - Hyperbilirubinaemia [Unknown]
  - Tenosynovitis [Unknown]
  - Cerebral small vessel ischaemic disease [Unknown]
  - Fibromyalgia [Unknown]
  - Nodal osteoarthritis [Unknown]
  - Pancytopenia [Unknown]
  - Diplopia [Unknown]
  - Confusional state [Unknown]
  - Thrombocytopenia [Unknown]
  - Blindness [Unknown]
  - Hypertensive crisis [Unknown]
  - Mental status changes [Unknown]
  - Hepatomegaly [Unknown]
  - Bruxism [Unknown]
  - Emphysema [Unknown]
  - Phlebitis [Unknown]
  - Coagulopathy [Unknown]
  - Diverticulum intestinal [Unknown]
  - Carotid artery occlusion [Unknown]
  - Dehydration [Unknown]
  - Hip fracture [Unknown]
  - Lumbar vertebral fracture [Unknown]
  - Scar [Unknown]
  - Acne [Unknown]
  - Seborrhoeic keratosis [Unknown]
  - Dermatitis [Unknown]
  - Basal cell carcinoma [Unknown]
  - Musculoskeletal chest pain [Unknown]
  - Abdominal pain upper [Unknown]
  - Chest pain [Unknown]
  - Back pain [Unknown]
  - Musculoskeletal pain [Unknown]
  - Dyspepsia [Unknown]
  - Upper-airway cough syndrome [Unknown]
  - Nasal congestion [Unknown]
  - Muscular weakness [Unknown]
  - Pyrexia [Unknown]
  - Anxiety [Unknown]
  - Myalgia [Unknown]
  - Night sweats [Unknown]
  - Fatigue [Unknown]
  - Gait disturbance [Unknown]
  - Neck pain [Unknown]
  - Pain in extremity [Unknown]
  - Tinnitus [Unknown]
  - Dysarthria [Unknown]
  - Headache [Unknown]
  - Constipation [Unknown]
  - Oesophagitis [Unknown]
  - Rhinitis allergic [Unknown]
  - Vomiting [Unknown]
  - Nausea [Unknown]
